FAERS Safety Report 9645005 (Version 2)
Quarter: 2013Q4

REPORT INFORMATION
  Report Type: Spontaneous
  Country: US (occurrence: US)
  Receive Date: 20131025
  Receipt Date: 20131105
  Transmission Date: 20140711
  Serious: No
  Sender: FDA-Public Use
  Company Number: US-PFIZER INC-2013303037

PATIENT
  Sex: Female

DRUGS (11)
  1. ANSAID [Suspect]
     Dosage: UNK
  2. NEURONTIN [Suspect]
     Dosage: UNK
  3. NARDIL [Suspect]
     Dosage: UNK
  4. SULFASALAZINE [Suspect]
     Dosage: UNK
  5. PAMELOR [Suspect]
     Dosage: UNK
  6. LAMICTAL [Suspect]
     Dosage: UNK
  7. TOPAMAX [Suspect]
     Dosage: UNK
  8. INDOCIN [Suspect]
     Dosage: UNK
  9. LITHIUM [Suspect]
     Dosage: UNK
  10. DEPAKOTE [Suspect]
     Dosage: UNK
  11. CYMBALTA [Suspect]
     Dosage: UNK

REACTIONS (1)
  - Drug hypersensitivity [Unknown]
